FAERS Safety Report 24281361 (Version 1)
Quarter: 2024Q3

REPORT INFORMATION
  Report Type: Spontaneous
  Country: US (occurrence: US)
  Receive Date: 20240904
  Receipt Date: 20240904
  Transmission Date: 20241017
  Serious: No
  Sender: MERZ
  Company Number: US-MRZWEB-2024070000073

PATIENT
  Age: 62 Year
  Sex: Male

DRUGS (1)
  1. XEOMIN [Suspect]
     Active Substance: INCOBOTULINUMTOXINA
     Indication: Muscle spasticity
     Dosage: 600 025
     Route: 030

REACTIONS (1)
  - Overdose [Unknown]
